FAERS Safety Report 9207642 (Version 1)
Quarter: 2013Q2

REPORT INFORMATION
  Report Type: Spontaneous
  Country: US (occurrence: None)
  Receive Date: 20130402
  Receipt Date: 20130402
  Transmission Date: 20140414
  Serious: Yes (Hospitalization, Disabling)
  Sender: FDA-Public Use
  Company Number: None

PATIENT
  Age: 25 Year
  Sex: Male
  Weight: 102.06 kg

DRUGS (3)
  1. ABILIFY [Suspect]
     Indication: BIPOLAR I DISORDER
     Dosage: ONE A DAY EVERYDAY
     Dates: start: 20110101, end: 20130401
  2. ABILIFY [Suspect]
     Dosage: ONE A DAY EVERYDAY
     Dates: start: 20110101, end: 20130401
  3. ABILIFY [Concomitant]

REACTIONS (2)
  - Diabetes mellitus [None]
  - Weight increased [None]
